FAERS Safety Report 24587911 (Version 1)
Quarter: 2024Q4

REPORT INFORMATION
  Report Type: Spontaneous
  Country: TH (occurrence: TH)
  Receive Date: 20241107
  Receipt Date: 20241107
  Transmission Date: 20250114
  Serious: Yes (Other)
  Sender: RANBAXY
  Company Number: TH-SUN PHARMACEUTICAL INDUSTRIES LTD-2024R1-476707

PATIENT
  Age: 12 Year
  Sex: Male

DRUGS (1)
  1. ACETAZOLAMIDE [Suspect]
     Active Substance: ACETAZOLAMIDE
     Indication: Central sleep apnoea syndrome
     Dosage: UNK
     Route: 065

REACTIONS (2)
  - Therapeutic response unexpected [Unknown]
  - Metabolic acidosis [Unknown]
